FAERS Safety Report 6454166-2 (Version None)
Quarter: 2009Q4

REPORT INFORMATION
  Report Type: 
  Country: None (occurrence: None)
  Receive Date: 20091124
  Receipt Date: 20091116
  Transmission Date: 20100525
  Serious: Yes (Death)
  Sender: FDA-Public Use
  Company Number: GXKR2009GR11943

PATIENT
  Age: 44 Year
  Sex: Male

DRUGS (11)
  1. CYCLOSPORINE [Suspect]
     Indication: IMMUNOSUPPRESSION
     Dosage: 8 MG/KG/DAY
     Route: 065
  2. PREDNISOLONE [Suspect]
     Indication: IMMUNOSUPPRESSION
     Dosage: 15 MG/DAY
     Route: 065
  3. MYCOPHENOLATE MOFETIL (NGX) [Suspect]
     Indication: IMMUNOSUPPRESSION
     Dosage: 2 G/DAY
     Route: 065
  4. CO-TRIMOXAZOL (NGX) [Suspect]
     Indication: PNEUMOCYSTIS JIROVECI PNEUMONIA
     Dosage: TRIMETHOPRIM: 20 MG/KG, SULFAMETHOXAZOLE: 100 MG/KG
     Route: 042
  5. ANTILYMPHOCYTE GLOBULIN [Suspect]
     Indication: IMMUNOSUPPRESSION
     Dosage: 1.5 MG/KG/DAY
     Route: 065
  6. HYDROCORTISONE [Concomitant]
     Dosage: 125 MG, TID
  7. CEFTRIAXONE [Concomitant]
     Indication: INFECTION PROPHYLAXIS
  8. ERYTHROMYCIN [Concomitant]
     Indication: INFECTION PROPHYLAXIS
  9. GANCICLOVIR [Concomitant]
     Indication: INFECTION PROPHYLAXIS
  10. DAPSONE [Concomitant]
     Indication: PNEUMOCYSTIS JIROVECI PNEUMONIA
     Dosage: 100 MG/DAY
  11. PENTAMIDINE ISETHIONATE [Concomitant]

REACTIONS (16)
  - ASPIRATION PLEURAL CAVITY [None]
  - CHEST TUBE INSERTION [None]
  - DRUG INEFFECTIVE [None]
  - DYSPNOEA [None]
  - ENDOTRACHEAL INTUBATION [None]
  - HYPERCAPNIA [None]
  - LUNG ABSCESS [None]
  - LUNG INFILTRATION [None]
  - LUNG LOBECTOMY [None]
  - MECHANICAL VENTILATION [None]
  - PLEURAL EFFUSION [None]
  - PNEUMOCYSTIS JIROVECI PNEUMONIA [None]
  - PNEUMOTHORAX [None]
  - PULMONARY HAEMORRHAGE [None]
  - PYREXIA [None]
  - THORACOTOMY [None]
